FAERS Safety Report 10172992 (Version 1)
Quarter: 2014Q2

REPORT INFORMATION
  Report Type: Spontaneous
  Country: US (occurrence: None)
  Receive Date: 20140514
  Receipt Date: 20140514
  Transmission Date: 20141212
  Serious: Yes (Hospitalization)
  Sender: FDA-Public Use
  Company Number: None

PATIENT
  Age: 66 Year
  Sex: Male
  Weight: 90.72 kg

DRUGS (2)
  1. ALEVE 200MG [Suspect]
     Indication: ARTHRALGIA
     Dosage: 1 PILL; TAKEN FOR APPROX. 2 YEARS?
     Route: 048
  2. ALEVE 200MG [Suspect]
     Indication: ARTHRITIS
     Dosage: 1 PILL; TAKEN FOR APPROX. 2 YEARS?
     Route: 048

REACTIONS (1)
  - Anaphylactic shock [None]
